FAERS Safety Report 6260910-X (Version None)
Quarter: 2009Q3

REPORT INFORMATION
  Report Type: 
  Country: None (occurrence: None)
  Receive Date: 20090709
  Receipt Date: 20071001
  Transmission Date: 20100115
  Serious: Yes (Other)
  Sender: FDA-Public Use
  Company Number: US-ASTRAZENECA-2006UW22297

PATIENT
  Age: 54 Year
  Sex: Female
  Weight: 186 kg

DRUGS (21)
  1. SEROQUEL [Suspect]
     Indication: DEPRESSION
     Dosage: 25 MG TO 200 MG
     Route: 048
     Dates: start: 20020101, end: 20030101
  2. SEROQUEL [Suspect]
     Indication: ANXIETY
     Dosage: 25 MG TO 200 MG
     Route: 048
     Dates: start: 20020101, end: 20030101
  3. SEROQUEL [Suspect]
     Indication: SLEEP DISORDER
     Dosage: 25 MG TO 200 MG
     Route: 048
     Dates: start: 20020101, end: 20030101
  4. DEMADEX [Concomitant]
  5. MAGNESIUM OXIDE [Concomitant]
  6. CELEBREX [Concomitant]
  7. POTASSIUM CHLORIDE [Concomitant]
  8. AVANDAMET [Concomitant]
  9. AVANDIA [Concomitant]
  10. METFORMIN HCL [Concomitant]
  11. LORAZEPAM [Concomitant]
  12. CLARITIN-D [Concomitant]
  13. TAGAMET [Concomitant]
  14. FUROSEMIDE [Concomitant]
  15. SULINDAC [Concomitant]
  16. PROMETHAZINE [Concomitant]
  17. GABAPENTIN [Concomitant]
  18. INDOMETHACIN [Concomitant]
  19. DICLOFENAC [Concomitant]
  20. DOXYCYCLINE [Concomitant]
  21. CELEXA [Concomitant]

REACTIONS (3)
  - DIABETES MELLITUS [None]
  - DIABETIC NEPHROPATHY [None]
  - DIABETIC NEUROPATHY [None]
